FAERS Safety Report 9434323 (Version 1)
Quarter: 2013Q3

REPORT INFORMATION
  Report Type: Spontaneous
  Country: US (occurrence: None)
  Receive Date: 20130731
  Receipt Date: 20130731
  Transmission Date: 20140515
  Serious: No
  Sender: FDA-Public Use
  Company Number: None

PATIENT
  Age: 61 Year
  Sex: Female

DRUGS (1)
  1. ARIMIDEX ^ASTRAZENECA^ [Suspect]
     Dosage: ARIMIDEX 1MG DAILY ORAL?3-5 MONTHS
     Route: 048

REACTIONS (2)
  - Arthralgia [None]
  - Ligament sprain [None]
